FAERS Safety Report 8332288-9 (Version None)
Quarter: 2012Q2

REPORT INFORMATION
  Report Type: 
  Country: None (occurrence: None)
  Receive Date: 20120503
  Receipt Date: 20120425
  Transmission Date: 20120825
  Serious: No
  Sender: FDA-Public Use
  Company Number: US-BIOGENIDEC-2012BI014789

PATIENT
  Age: 37 Year
  Sex: Female

DRUGS (4)
  1. LEXAPRO [Concomitant]
     Indication: DEPRESSION
     Dates: start: 19970101
  2. TYSABRI [Suspect]
     Route: 042
     Dates: start: 20110101
  3. TYSABRI [Suspect]
     Indication: MULTIPLE SCLEROSIS
     Route: 042
     Dates: start: 20090717, end: 20110101
  4. LITHIUM CARBONATE [Concomitant]
     Indication: PSYCHOTIC DISORDER
     Dates: start: 19980101

REACTIONS (8)
  - VISION BLURRED [None]
  - NAUSEA [None]
  - TRANCE [None]
  - SUDDEN ONSET OF SLEEP [None]
  - CATATONIA [None]
  - NASAL CONGESTION [None]
  - HEADACHE [None]
  - DRY EYE [None]
